FAERS Safety Report 10024669 (Version 1)
Quarter: 2014Q1

REPORT INFORMATION
  Report Type: Spontaneous
  Country: US (occurrence: None)
  Receive Date: 20140318
  Receipt Date: 20140318
  Transmission Date: 20141002
  Serious: Yes (Other)
  Sender: FDA-Public Use
  Company Number: US-JNJFOC-20140303761

PATIENT
  Age: 72 Year
  Sex: Male

DRUGS (2)
  1. DECITABINE [Suspect]
     Indication: MYELODYSPLASTIC SYNDROME
     Dosage: CYCLES INTRAVENOUS
     Route: 042
  2. CLOFARABINE [Suspect]
     Indication: MYELODYSPLASTIC SYNDROME
     Route: 048

REACTIONS (1)
  - Bone marrow failure [None]
